FAERS Safety Report 8133593-1 (Version None)
Quarter: 2012Q1

REPORT INFORMATION
  Report Type: 
  Country: None (occurrence: None)
  Receive Date: 20120213
  Receipt Date: 20120203
  Transmission Date: 20120608
  Serious: Yes (Hospitalization)
  Sender: FDA-Public Use
  Company Number: DE-MEDIMMUNE-MEDI-0014797

PATIENT
  Sex: Male

DRUGS (1)
  1. SYNAGIS [Suspect]
     Dates: start: 20111219, end: 20120117

REACTIONS (2)
  - RESPIRATORY SYNCYTIAL VIRUS INFECTION [None]
  - GENERAL PHYSICAL HEALTH DETERIORATION [None]
